FAERS Safety Report 9357469 (Version 2)
Quarter: 2016Q3

REPORT INFORMATION
  Report Type: Report from Study
  Country: US (occurrence: US)
  Receive Date: 20130620
  Receipt Date: 20160930
  Transmission Date: 20161109
  Serious: Yes (Hospitalization, Other)
  Sender: FDA-Public Use
  Company Number: US-ROCHE-1239048

PATIENT
  Age: 71 Year
  Sex: Female
  Weight: 85.45 kg

DRUGS (6)
  1. BEVACIZUMAB [Suspect]
     Active Substance: BEVACIZUMAB
     Indication: ENDOMETRIAL CANCER
     Dosage: OVER 30-90 MINUTES ON DAY 1 (STARTING WITH CYCLE 2 FOR THOSE PTS ENTERING POST SURGERY) X 6 CYCLES,
     Route: 042
     Dates: start: 20110712, end: 20130604
  2. CARBOPLATIN. [Suspect]
     Active Substance: CARBOPLATIN
     Indication: ENDOMETRIAL CANCER
     Dosage: AUC = 6 OVER 30 MINUTES ON DAY 1 X 6 CYCLES, LAST DOSE PRIOR TO SAE: 01/NOV/2011
     Route: 042
     Dates: start: 20110712, end: 20130604
  3. TEMSIROLIMUS [Suspect]
     Active Substance: TEMSIROLIMUS
     Indication: ENDOMETRIAL CANCER
     Route: 065
  4. PACLITAXEL. [Suspect]
     Active Substance: PACLITAXEL
     Indication: ENDOMETRIAL CANCER
     Dosage: LAST DOSE PRIOR TO SAE: 01/NOV/2011
     Route: 042
     Dates: start: 20110712, end: 20130604
  5. BEVACIZUMAB [Suspect]
     Active Substance: BEVACIZUMAB
     Route: 042
     Dates: start: 20110802
  6. IXABEPILONE [Suspect]
     Active Substance: IXABEPILONE
     Indication: ENDOMETRIAL CANCER
     Route: 065

REACTIONS (8)
  - Neutrophil count decreased [Unknown]
  - Syncope [Unknown]
  - Cerebral ischaemia [Unknown]
  - Platelet count decreased [Unknown]
  - Cerebrovascular accident [Not Recovered/Not Resolved]
  - Cystitis [Unknown]
  - Bone pain [Unknown]
  - Myalgia [Unknown]

NARRATIVE: CASE EVENT DATE: 20130530
